FAERS Safety Report 14939098 (Version 1)
Quarter: 2018Q2

REPORT INFORMATION
  Report Type: Spontaneous
  Country: US (occurrence: US)
  Receive Date: 20180525
  Receipt Date: 20180525
  Transmission Date: 20180711
  Serious: No
  Sender: FDA-Public Use
  Company Number: US-PFIZER INC-2018213372

PATIENT
  Sex: Male

DRUGS (4)
  1. ADVIL [Suspect]
     Active Substance: IBUPROFEN
     Dosage: UNK
  2. BUFFERIN [Concomitant]
     Active Substance: ASPIRIN
     Indication: LUMBAR SPINAL STENOSIS
     Dosage: 325 MG, UNK (3 TABLETS AT A TIME: 4 HOURS LATER, 3 MORE TABLETS, THEN ANOTHER 4 HOURS LATER)
     Route: 048
  3. ALEVE [Suspect]
     Active Substance: NAPROXEN SODIUM
     Dosage: UNK
  4. TYLENOL [Concomitant]
     Active Substance: ACETAMINOPHEN
     Dosage: UNK (TAKEN OCCASIONALLY)

REACTIONS (2)
  - Constipation [Unknown]
  - Gastrooesophageal reflux disease [Unknown]
